FAERS Safety Report 9271326 (Version 3)
Quarter: 2014Q3

REPORT INFORMATION
  Report Type: Report from Study
  Country: US (occurrence: US)
  Receive Date: 20130506
  Receipt Date: 20140813
  Transmission Date: 20150326
  Serious: Yes (Hospitalization)
  Sender: FDA-Public Use
  Company Number: PHEH2013US009648

PATIENT
  Age: 38 Year
  Sex: Female
  Weight: 70.4 kg

DRUGS (2)
  1. GILENYA [Suspect]
     Active Substance: FINGOLIMOD HYDROCHLORIDE
     Indication: MULTIPLE SCLEROSIS
     Dosage: 0.5 MG, QD
     Route: 048
     Dates: start: 20130429
  2. BUPROPION [Suspect]
     Active Substance: BUPROPION
     Indication: DEPRESSION

REACTIONS (20)
  - Electrocardiogram QT prolonged [Recovering/Resolving]
  - Atrioventricular dissociation [Recovering/Resolving]
  - Blood pressure decreased [Unknown]
  - Abdominal pain [Unknown]
  - Heart rate decreased [Recovering/Resolving]
  - Anxiety [Unknown]
  - Pain [Unknown]
  - Sinus tachycardia [Unknown]
  - Sinus bradycardia [Unknown]
  - Sinus arrhythmia [Recovering/Resolving]
  - Monocyte percentage increased [Unknown]
  - White blood cell count decreased [Unknown]
  - Cardio-respiratory distress [Unknown]
  - Thrombocytopenia [Unknown]
  - Platelet count decreased [Unknown]
  - Dizziness [Recovered/Resolved]
  - Nodal rhythm [Recovering/Resolving]
  - Flushing [Recovered/Resolved]
  - Blood chloride increased [Unknown]
  - Blood calcium decreased [Unknown]

NARRATIVE: CASE EVENT DATE: 20130429
